FAERS Safety Report 5406125-6 (Version None)
Quarter: 2007Q3

REPORT INFORMATION
  Report Type: 
  Country: None (occurrence: None)
  Receive Date: 20070802
  Receipt Date: 20070802
  Transmission Date: 20080115
  Serious: Yes (Disabling)
  Sender: FDA-Public Use
  Company Number: None

PATIENT
  Age: 29 Year
  Sex: Male
  Weight: 67.586 kg

DRUGS (3)
  1. ESCITALOPRAM [Suspect]
     Indication: DEPRESSION
     Dosage: 10MG QAM PO
     Route: 048
     Dates: start: 20070725, end: 20070725
  2. HYDROXYUREA [Concomitant]
  3. LOREZAPAM [Concomitant]

REACTIONS (2)
  - PRURITUS [None]
  - RASH [None]
